FAERS Safety Report 20475095 (Version 1)
Quarter: 2022Q1

REPORT INFORMATION
  Report Type: Spontaneous
  Country: US (occurrence: None)
  Receive Date: 20220214
  Receipt Date: 20220214
  Transmission Date: 20220423
  Serious: Yes (Other)
  Sender: FDA-Public Use
  Company Number: None

PATIENT
  Age: 93 Year
  Sex: Female
  Weight: 65.25 kg

DRUGS (1)
  1. MOLNUPIRAVIR [Suspect]
     Active Substance: MOLNUPIRAVIR
     Indication: COVID-19
     Dosage: OTHER FREQUENCY : Q12 HOURS;?
     Route: 048
     Dates: start: 20220210, end: 20220212

REACTIONS (1)
  - Rash [None]

NARRATIVE: CASE EVENT DATE: 20220212
